FAERS Safety Report 9729017 (Version 1)
Quarter: 2013Q4

REPORT INFORMATION
  Report Type: Spontaneous
  Country: NO (occurrence: NO)
  Receive Date: 20131204
  Receipt Date: 20131204
  Transmission Date: 20140711
  Serious: Yes (Death, Other)
  Sender: FDA-Public Use
  Company Number: NO-WATSON-2013-22198

PATIENT
  Sex: 0

DRUGS (7)
  1. CIPROFLOXACIN HYDROCHLORIDE (UNKNOWN) [Suspect]
     Indication: PNEUMONIA
     Dosage: UNK
     Route: 042
     Dates: start: 201310
  2. BENZYLPENICILLIN [Interacting]
     Indication: PNEUMONIA
     Dosage: UNK
     Route: 042
     Dates: start: 201310
  3. MAREVAN [Interacting]
     Indication: AORTIC VALVE REPLACEMENT
     Dosage: UNK; TAKEDA MAH; TABLET; ACCORDING TO SCEDULE
     Route: 065
  4. MAREVAN [Interacting]
     Dosage: UNK, ACCORDING TO SCHEDULE, TABLET
     Route: 048
  5. BURINEX [Concomitant]
     Indication: PRODUCT USED FOR UNKNOWN INDICATION
     Dosage: 1 MG, DAILY
     Route: 048
  6. PANTOPRAZOLE [Concomitant]
     Indication: PRODUCT USED FOR UNKNOWN INDICATION
     Dosage: 40 MG, DAILY
     Route: 048
  7. RIVOTRIL [Concomitant]
     Indication: EPILEPSY
     Dosage: 0.5 MG, DAILY
     Route: 047

REACTIONS (3)
  - Cerebral haemorrhage [Fatal]
  - International normalised ratio increased [Not Recovered/Not Resolved]
  - Drug interaction [Not Recovered/Not Resolved]
